FAERS Safety Report 13389611 (Version 1)
Quarter: 2017Q1

REPORT INFORMATION
  Report Type: Spontaneous
  Country: DE (occurrence: DE)
  Receive Date: 20170331
  Receipt Date: 20170331
  Transmission Date: 20170429
  Serious: Yes (Other)
  Sender: FDA-Public Use
  Company Number: DE-SUN PHARMACEUTICAL INDUSTRIES LTD-2017R1-137203

PATIENT
  Age: 1 Day
  Sex: Male
  Weight: 3.01 kg

DRUGS (4)
  1. ACTRAPID [Concomitant]
     Active Substance: INSULIN HUMAN
     Indication: GESTATIONAL DIABETES
     Dosage: 4 IU, BID
     Route: 064
     Dates: start: 20160627, end: 20161005
  2. CEFUROXIM [Concomitant]
     Active Substance: CEFUROXIME
     Indication: URINARY TRACT INFECTION
     Dosage: 500 MG, BID
     Route: 064
     Dates: start: 20160627, end: 20160701
  3. FOLIO FORTE [Concomitant]
     Active Substance: FOLIC ACID\VITAMINS
     Indication: PROPHYLAXIS OF NEURAL TUBE DEFECT
     Dosage: 0.8 MG, QD
     Route: 064
     Dates: start: 20151228, end: 20160405
  4. QUETIAPINE. [Suspect]
     Active Substance: QUETIAPINE
     Indication: SCHIZOAFFECTIVE DISORDER
     Dosage: 800 MG, QD
     Route: 064
     Dates: start: 20151228, end: 20161005

REACTIONS (1)
  - Small for dates baby [Recovering/Resolving]

NARRATIVE: CASE EVENT DATE: 20161005
